FAERS Safety Report 25585454 (Version 1)
Quarter: 2025Q3

REPORT INFORMATION
  Report Type: Spontaneous
  Country: US (occurrence: None)
  Receive Date: 20250718
  Receipt Date: 20250718
  Transmission Date: 20251020
  Serious: Yes (Hospitalization)
  Sender: FDA-CTU
  Company Number: None

PATIENT
  Age: 35 Year
  Sex: Female
  Weight: 94.5 kg

DRUGS (4)
  1. WELLBUTRIN XL [Suspect]
     Active Substance: BUPROPION HYDROCHLORIDE
     Indication: Depression
     Dosage: FREQUENCY : DAILY;?
     Route: 048
     Dates: start: 20250604, end: 20250621
  2. Luvox 100mgs BID [Concomitant]
  3. Caplyta 42mgs daily [Concomitant]
     Dates: start: 20250131
  4. Xanax 0.25mgs 1 po daily PRN: panic [Concomitant]
     Dates: start: 20250131

REACTIONS (7)
  - Urticaria [None]
  - Therapy change [None]
  - Eye disorder [None]
  - Lip swelling [None]
  - Dizziness [None]
  - Anaphylactic reaction [None]
  - Swelling face [None]

NARRATIVE: CASE EVENT DATE: 20250621
